FAERS Safety Report 6201567-3 (Version None)
Quarter: 2009Q2

REPORT INFORMATION
  Report Type: 
  Country: None (occurrence: None)
  Receive Date: 20090526
  Receipt Date: 20090514
  Transmission Date: 20091009
  Serious: Yes (Hospitalization)
  Sender: FDA-Public Use
  Company Number: IL-CELGENEUS-082-C5013-09042074

PATIENT
  Sex: Female

DRUGS (2)
  1. CC-5013 [Suspect]
     Indication: MULTIPLE MYELOMA
     Route: 048
     Dates: start: 20080701
  2. CC-5013 [Suspect]
     Route: 048
     Dates: start: 20090401

REACTIONS (2)
  - BLOOD CALCIUM INCREASED [None]
  - SEPSIS [None]
